FAERS Safety Report 5041102-9 (Version None)
Quarter: 2006Q3

REPORT INFORMATION
  Report Type: 
  Country: None (occurrence: None)
  Receive Date: 20060703
  Receipt Date: 20060623
  Transmission Date: 20061208
  Serious: Yes (Other)
  Sender: FDA-Public Use
  Company Number: US-ROCHE-453112

PATIENT
  Age: 42 Year
  Sex: Female

DRUGS (7)
  1. PEGASYS [Suspect]
     Dosage: ROUTE REPORTED AS INJ.
     Route: 050
     Dates: start: 20060613, end: 20060615
  2. PEGASYS [Suspect]
     Route: 050
     Dates: start: 20060615, end: 20060623
  3. COPEGUS [Suspect]
     Route: 048
     Dates: start: 20060613, end: 20060623
  4. HYDROCHLOROTHIAZIDE [Concomitant]
     Indication: HYPERTENSION
     Dosage: DOSAGE REGIMEN REPORTED: DAILY.
     Route: 048
  5. POTASSIUM [Concomitant]
     Indication: HYPERTENSION
     Route: 048
  6. KLONOPIN [Concomitant]
  7. LAMICTAL [Concomitant]

REACTIONS (4)
  - DEPRESSION [None]
  - DYSARTHRIA [None]
  - HYPOTENSION [None]
  - NAUSEA [None]
